FAERS Safety Report 4794657-3 (Version None)
Quarter: 2005Q4

REPORT INFORMATION
  Report Type: 
  Country: None (occurrence: None)
  Receive Date: 20051011
  Receipt Date: 20050923
  Transmission Date: 20060501
  Serious: Yes (Hospitalization)
  Sender: FDA-Public Use
  Company Number: US-MERCK-0509USA03631

PATIENT
  Age: 87 Year
  Sex: Female

DRUGS (2)
  1. FOSAMAX [Suspect]
     Indication: BONE DENSITY DECREASED
     Route: 048
     Dates: start: 20050401, end: 20050801
  2. SYNTHROID [Concomitant]
     Route: 065

REACTIONS (11)
  - ABDOMINAL DISTENSION [None]
  - DIFFICULTY IN WALKING [None]
  - DIZZINESS [None]
  - DYSPNOEA [None]
  - EROSIVE OESOPHAGITIS [None]
  - GASTRITIS EROSIVE [None]
  - GASTROINTESTINAL HAEMORRHAGE [None]
  - HAEMATOCHEZIA [None]
  - MUSCLE SPASMS [None]
  - NAUSEA [None]
  - VOMITING [None]
